FAERS Safety Report 23672120 (Version 1)
Quarter: 2024Q1

REPORT INFORMATION
  Report Type: Spontaneous
  Country: GE (occurrence: GE)
  Receive Date: 20240326
  Receipt Date: 20240326
  Transmission Date: 20240410
  Serious: Yes (Other)
  Sender: FDA-Public Use
  Company Number: GE-STRIDES ARCOLAB LIMITED-2024SP003458

PATIENT
  Age: 3 Month
  Sex: Female

DRUGS (5)
  1. PROPRANOLOL [Suspect]
     Active Substance: PROPRANOLOL HYDROCHLORIDE
     Indication: Infantile haemangioma
     Dosage: 0.5 MILLIGRAM/KILOGRAM/DAY
     Route: 048
  2. PROPRANOLOL [Suspect]
     Active Substance: PROPRANOLOL HYDROCHLORIDE
     Dosage: 1 MILLIGRAM/KILOGRAM/DAY
     Route: 048
  3. PROPRANOLOL [Suspect]
     Active Substance: PROPRANOLOL HYDROCHLORIDE
     Dosage: 1.5 MILLIGRAM/KILOGRAM/DAY
     Route: 048
  4. PROPRANOLOL [Suspect]
     Active Substance: PROPRANOLOL HYDROCHLORIDE
     Dosage: 2 MILLIGRAM/KILOGRAM/DAY (FINAL TARGET DOSAGE)
     Route: 048
     Dates: end: 202301
  5. TIMOLOL [Suspect]
     Active Substance: TIMOLOL
     Indication: Infantile haemangioma
     Dosage: UNK, TID (3 TIMES A DAY)
     Route: 061
     Dates: start: 202112

REACTIONS (2)
  - Skin atrophy [Recovered/Resolved]
  - Off label use [Unknown]
